FAERS Safety Report 10026390 (Version 2)
Quarter: 2014Q1

REPORT INFORMATION
  Report Type: Spontaneous
  Country: US (occurrence: US)
  Receive Date: 20140321
  Receipt Date: 20140321
  Transmission Date: 20141002
  Serious: No
  Sender: FDA-Public Use
  Company Number: US-ALLERGAN-1400681US

PATIENT
  Age: 56 Year
  Sex: Male

DRUGS (2)
  1. LUMIGAN [Suspect]
     Indication: GLAUCOMA
     Dosage: 2 GTT, UNK
     Route: 047
     Dates: start: 20130629
  2. SIMBRINZA [Suspect]
     Indication: GLAUCOMA
     Dosage: 2 GTT, BID-TID
     Route: 047
     Dates: start: 20130822

REACTIONS (2)
  - Intraocular pressure increased [Recovered/Resolved]
  - Expired drug administered [Unknown]
